FAERS Safety Report 10707009 (Version 1)
Quarter: 2015Q1

REPORT INFORMATION
  Report Type: Spontaneous
  Country: US (occurrence: None)
  Receive Date: 20150112
  Receipt Date: 20150112
  Transmission Date: 20150721
  Serious: No
  Sender: FDA-Public Use
  Company Number: None

PATIENT
  Age: 46 Year
  Sex: Female

DRUGS (1)
  1. ENBREL [Suspect]
     Active Substance: ETANERCEPT
     Indication: RHEUMATOID ARTHRITIS
     Dosage: 50MG  ONCE PER WEEK SUBCUTANEOUS?DURATION: AT LEAST ONE YEAR
     Route: 058

REACTIONS (5)
  - Injection site rash [None]
  - Injection site reaction [None]
  - Injection site pain [None]
  - Injection site erythema [None]
  - Product quality issue [None]

NARRATIVE: CASE EVENT DATE: 20141218
